FAERS Safety Report 12375903 (Version 1)
Quarter: 2016Q2

REPORT INFORMATION
  Report Type: Report from Study
  Country: IN (occurrence: IN)
  Receive Date: 20160517
  Receipt Date: 20160517
  Transmission Date: 20160815
  Serious: Yes (Hospitalization, Other)
  Sender: FDA-Public Use
  Company Number: IN-GLAXOSMITHKLINE-IN2016069196

PATIENT
  Age: 6 Year
  Sex: Male
  Weight: 15 kg

DRUGS (4)
  1. LAMOTRIGINE. [Suspect]
     Active Substance: LAMOTRIGINE
     Indication: SEIZURE
     Dosage: FROM WEEK 2 TO 4
  2. PHENYTOIN. [Concomitant]
     Active Substance: PHENYTOIN
  3. LAMOTRIGINE. [Suspect]
     Active Substance: LAMOTRIGINE
     Indication: CEREBRAL PALSY
     Dosage: FOR 1 WEEK
  4. VALPROATE SODIUM. [Concomitant]
     Active Substance: VALPROATE SODIUM

REACTIONS (1)
  - Drug reaction with eosinophilia and systemic symptoms [Recovering/Resolving]
